FAERS Safety Report 10214751 (Version 2)
Quarter: 2014Q3

REPORT INFORMATION
  Report Type: Spontaneous
  Country: DE (occurrence: DE)
  Receive Date: 20140603
  Receipt Date: 20140707
  Transmission Date: 20150326
  Serious: Yes (Other)
  Sender: FDA-Public Use
  Company Number: DE-TEVA-484285GER

PATIENT
  Age: 64 Year
  Sex: Female

DRUGS (3)
  1. AMLODIPIN-CT 5 MG N TABLETTEN [Suspect]
     Active Substance: AMLODIPINE BESYLATE
     Indication: HYPERTENSION
     Dosage: 5 MILLIGRAM DAILY;
     Route: 048
     Dates: start: 2011
  2. PAROXAT [Concomitant]
     Active Substance: PAROXETINE HYDROCHLORIDE
  3. BLOPRESS [Concomitant]
     Active Substance: CANDESARTAN CILEXETIL

REACTIONS (4)
  - Polymyalgia rheumatica [Recovering/Resolving]
  - Rheumatic fever [Recovered/Resolved]
  - Headache [Recovered/Resolved]
  - Temporal arteritis [Recovering/Resolving]

NARRATIVE: CASE EVENT DATE: 201312
